FAERS Safety Report 20184973 (Version 5)
Quarter: 2025Q1

REPORT INFORMATION
  Report Type: Spontaneous
  Country: PT (occurrence: PT)
  Receive Date: 20211214
  Receipt Date: 20250226
  Transmission Date: 20250409
  Serious: Yes (Life-Threatening, Hospitalization, Other)
  Sender: AUROBINDO
  Company Number: PT-MYLANLABS-2021M1081278

PATIENT
  Age: 63 Year
  Sex: Female

DRUGS (5)
  1. CELECOXIB [Suspect]
     Active Substance: CELECOXIB
     Indication: Back pain
     Dosage: 200 MILLIGRAM, TWO TIMES A DAY
     Route: 048
  2. CELECOXIB [Suspect]
     Active Substance: CELECOXIB
     Indication: Pain
  3. FLUOXETINE [Concomitant]
     Active Substance: FLUOXETINE HYDROCHLORIDE
     Indication: Product used for unknown indication
     Dosage: 20 MILLIGRAM, ONCE A DAY
     Route: 065
  4. AMITRIPTYLINE [Concomitant]
     Active Substance: AMITRIPTYLINE
     Indication: Product used for unknown indication
     Dosage: 25 MILLIGRAM, ONCE A DAY
     Route: 065
  5. CLOXAZOLAM [Concomitant]
     Active Substance: CLOXAZOLAM
     Indication: Product used for unknown indication
     Dosage: 2 MILLIGRAM, ONCE A DAY
     Route: 065

REACTIONS (14)
  - Hepatitis acute [Recovering/Resolving]
  - Altered state of consciousness [Recovering/Resolving]
  - Rash maculo-papular [Recovering/Resolving]
  - Abdominal pain upper [Recovering/Resolving]
  - Nausea [Recovering/Resolving]
  - Vomiting [Recovering/Resolving]
  - Pyrexia [Recovering/Resolving]
  - Jaundice [Recovering/Resolving]
  - Hyperbilirubinaemia [Recovering/Resolving]
  - Hepatitis [Recovered/Resolved]
  - Drug reaction with eosinophilia and systemic symptoms [Recovered/Resolved]
  - Respiratory failure [Recovered/Resolved]
  - Pancytopenia [Recovered/Resolved]
  - Food intolerance [Recovering/Resolving]
